FAERS Safety Report 5975933-5 (Version None)
Quarter: 2008Q4

REPORT INFORMATION
  Report Type: 
  Country: None (occurrence: None)
  Receive Date: 20081202
  Receipt Date: 20081124
  Transmission Date: 20090506
  Serious: Yes (Other)
  Sender: FDA-Public Use
  Company Number: US-GENENTECH-272438

PATIENT
  Age: 70 Year
  Sex: Male

DRUGS (7)
  1. AVASTIN [Suspect]
     Indication: PROSTATE CANCER
     Dosage: 15 MG/KG, Q21D
  2. DOCETAXEL [Suspect]
     Indication: PROSTATE CANCER
     Dosage: 75 MG/M2, Q21D
  3. THALIDOMIDE [Suspect]
     Indication: PROSTATE CANCER
     Dosage: 200 MG, QD
  4. PREDNISONE TAB [Suspect]
     Indication: PROSTATE CANCER
     Dosage: 10 MG, QD
  5. CALCIUM CHANNEL BLOCKER NOS [Concomitant]
     Indication: HYPERTENSION
  6. DIURETICS [Concomitant]
     Indication: HYPERTENSION
  7. HYDRALAZINE HCL [Concomitant]
     Indication: HYPERTENSION

REACTIONS (1)
  - AORTIC DISSECTION [None]
